FAERS Safety Report 8856438 (Version 1)
Quarter: 2012Q4

REPORT INFORMATION
  Report Type: Spontaneous
  Country: US (occurrence: None)
  Receive Date: 20121024
  Receipt Date: 20121024
  Transmission Date: 20130627
  Serious: No
  Sender: FDA-Public Use
  Company Number: None

PATIENT
  Age: 44 Year
  Sex: Male
  Weight: 88.45 kg

DRUGS (1)
  1. METHYLPREDNISOLONE [Suspect]

REACTIONS (4)
  - Dizziness [None]
  - Headache [None]
  - Vision blurred [None]
  - Panic attack [None]
